FAERS Safety Report 7801521-1 (Version None)
Quarter: 2011Q4

REPORT INFORMATION
  Report Type: 
  Country: None (occurrence: None)
  Receive Date: 20111007
  Receipt Date: 20110928
  Transmission Date: 20120403
  Serious: Yes (Death, Hospitalization)
  Sender: FDA-Public Use
  Company Number: DE-JNJFOC-20110911777

PATIENT
  Age: 71 Year
  Sex: Female

DRUGS (9)
  1. METHOTREXATE [Concomitant]
     Route: 048
     Dates: start: 19970801, end: 20110701
  2. HYDROCHLOROTHIAZIDE [Concomitant]
  3. FOLIC ACID [Concomitant]
     Route: 048
     Dates: start: 19970801, end: 20110701
  4. BISOPROLOL [Concomitant]
  5. REMICADE [Suspect]
     Route: 042
     Dates: start: 20100301, end: 20110418
  6. REMICADE [Suspect]
     Indication: RHEUMATOID ARTHRITIS
     Route: 042
     Dates: start: 20080104
  7. ERGOCALCIFEROL [Concomitant]
  8. INSULIN [Concomitant]
  9. METFORMIN HYDROCHLORIDE [Concomitant]

REACTIONS (2)
  - PANCREATIC CARCINOMA METASTATIC [None]
  - BILE DUCT CANCER [None]
